FAERS Safety Report 9010876 (Version 4)
Quarter: 2013Q1

REPORT INFORMATION
  Report Type: Spontaneous
  Country: IE (occurrence: IE)
  Receive Date: 20130109
  Receipt Date: 20130228
  Transmission Date: 20140127
  Serious: Yes (Hospitalization, Other)
  Sender: FDA-Public Use
  Company Number: IE-B.I. PHARMACEUTICALS,INC./RIDGEFIELD-2013-UK-00020UK

PATIENT
  Age: 76 Year
  Sex: Female
  Weight: 50 kg

DRUGS (8)
  1. PRADAXA [Suspect]
     Indication: ATRIAL FIBRILLATION
     Dosage: 220 MG
     Route: 048
     Dates: start: 20120201, end: 20121130
  2. CITALOPRAM [Suspect]
     Indication: DEPRESSION
     Dosage: 10 MG
     Route: 048
     Dates: start: 20120901, end: 20121130
  3. PROLIA [Concomitant]
     Indication: OSTEOPOROSIS
     Route: 058
     Dates: start: 20120501, end: 20121221
  4. PERINDOPRIL [Concomitant]
     Indication: HYPERTENSION
     Dosage: 5 MG
     Dates: start: 20120701, end: 20121221
  5. BISOPROLOL [Concomitant]
     Indication: HYPERTENSION
     Dosage: 2.5 MG
     Dates: start: 20120201, end: 20121221
  6. TOVIAZ [Concomitant]
     Indication: URINARY INCONTINENCE
     Dosage: 4 MG
     Dates: start: 20120801, end: 20121221
  7. CALCICHEW-D3 FORTE [Concomitant]
     Indication: OSTEOPOROSIS
     Dosage: 2 ANZ
     Dates: start: 20120501, end: 20121221
  8. ARTELAC [Concomitant]
     Indication: DRY EYE
     Dates: start: 20121001, end: 20121221

REACTIONS (5)
  - Renal impairment [Recovered/Resolved]
  - Renal impairment [Recovered/Resolved]
  - Gastrointestinal haemorrhage [Recovered/Resolved]
  - Melaena [Recovered/Resolved]
  - Medication error [Recovered/Resolved]
